FAERS Safety Report 4414973-4 (Version None)
Quarter: 2004Q3

REPORT INFORMATION
  Report Type: 
  Country: None (occurrence: None)
  Receive Date: 20040803
  Receipt Date: 20040803
  Transmission Date: 20050211
  Serious: Yes (Life-Threatening)
  Sender: FDA-Public Use
  Company Number: None

PATIENT
  Age: 56 Year
  Sex: Male
  Weight: 77.1115 kg

DRUGS (1)
  1. FLUDROCORTISONE  0.1MG  GLOBAL [Suspect]
     Indication: ADRENAL INSUFFICIENCY
     Dosage: 0.1MG QD ORAL
     Route: 048
     Dates: start: 20040712, end: 20040723

REACTIONS (1)
  - ADRENOCORTICAL INSUFFICIENCY ACUTE [None]
